FAERS Safety Report 8182271-1 (Version None)
Quarter: 2012Q1

REPORT INFORMATION
  Report Type: 
  Country: None (occurrence: None)
  Receive Date: 20120302
  Receipt Date: 20120227
  Transmission Date: 20120608
  Serious: Yes (Hospitalization, Other)
  Sender: FDA-Public Use
  Company Number: PHEH2011US04149

PATIENT
  Sex: Female

DRUGS (9)
  1. BENADRYL [Concomitant]
  2. METHADON HCL TAB [Concomitant]
  3. CALCIUM [Concomitant]
  4. VITAMIN D [Concomitant]
  5. FOLIC ACID [Concomitant]
  6. SODIUM BICARBONATE [Concomitant]
  7. EXJADE [Suspect]
     Indication: SICKLE CELL ANAEMIA
     Dosage: 1000 MG, DAILY
     Route: 048
     Dates: start: 20070329
  8. DILAUDID [Concomitant]
  9. WARFARIN SODIUM [Concomitant]

REACTIONS (2)
  - SICKLE CELL ANAEMIA WITH CRISIS [None]
  - GASTROENTERITIS VIRAL [None]
